FAERS Safety Report 20376913 (Version 6)
Quarter: 2022Q2

REPORT INFORMATION
  Report Type: Report from Study
  Country: PL (occurrence: PL)
  Receive Date: 20220125
  Receipt Date: 20220426
  Transmission Date: 20220721
  Serious: Yes (Other)
  Sender: FDA-Public Use
  Company Number: PL-BRISTOL-MYERS SQUIBB COMPANY-BMS-2022-009907

PATIENT
  Age: 64 Year
  Sex: Female
  Weight: 70.00 kg

DRUGS (8)
  1. RUCAPARIB [Suspect]
     Active Substance: RUCAPARIB
     Indication: Ovarian cancer
     Route: 048
  2. METFORMIN HYDROCHLORIDE [Concomitant]
     Active Substance: METFORMIN HYDROCHLORIDE
     Dosage: UNK
     Route: 065
     Dates: start: 20190222
  3. METFORMIN HYDROCHLORIDE [Concomitant]
     Active Substance: METFORMIN HYDROCHLORIDE
     Indication: Product used for unknown indication
  4. LIV 52 [ACHILLEA MILLEFOLIUM;AYURVEDIC PREPARATION N [Concomitant]
  5. MAGNE B6 [MAGNESIUM LACTATE;PYRIDOXINE HYDROCHLORIDE [Concomitant]
  6. ESSENTIAL FORTE N [Concomitant]
  7. ESSENTIAL FORTE N [Concomitant]
     Indication: Product used for unknown indication
     Route: 065
  8. ESSENTIAL FORTE N [Concomitant]
     Dosage: UNK
     Route: 065
     Dates: start: 20211216

REACTIONS (1)
  - Drug-induced liver injury [Recovering/Resolving]

NARRATIVE: CASE EVENT DATE: 20220113
